FAERS Safety Report 12456220 (Version 2)
Quarter: 2016Q4

REPORT INFORMATION
  Report Type: Report from Study
  Country: PL (occurrence: PL)
  Receive Date: 20160610
  Receipt Date: 20161020
  Transmission Date: 20170207
  Serious: Yes (Hospitalization, Other)
  Sender: FDA-Public Use
  Company Number: PL-JNJFOC-20160600332

PATIENT

DRUGS (2)
  1. IBRUTINIB [Suspect]
     Active Substance: IBRUTINIB
     Indication: LYMPHOCYTIC LYMPHOMA
     Route: 048
  2. IBRUTINIB [Suspect]
     Active Substance: IBRUTINIB
     Indication: CHRONIC LYMPHOCYTIC LEUKAEMIA
     Route: 048

REACTIONS (15)
  - Atrial fibrillation [Unknown]
  - Respiratory tract infection [Unknown]
  - Hypertransaminasaemia [Unknown]
  - Neutropenia [Unknown]
  - Lymphocytosis [Unknown]
  - Upper respiratory tract infection [Unknown]
  - Skin lesion [Unknown]
  - Thrombocytopenia [Unknown]
  - Pneumonia [Unknown]
  - Renal impairment [Unknown]
  - Diarrhoea [Unknown]
  - Pancytopenia [Unknown]
  - Rash [Unknown]
  - Gastrooesophageal reflux disease [Unknown]
  - Haemorrhagic diathesis [Unknown]
